FAERS Safety Report 5736229-X (Version None)
Quarter: 2008Q2

REPORT INFORMATION
  Report Type: 
  Country: None (occurrence: None)
  Receive Date: 20080509
  Receipt Date: 20080509
  Transmission Date: 20081010
  Serious: Yes (Other)
  Sender: FDA-Public Use
  Company Number: None

PATIENT
  Age: 18 Year
  Sex: Male
  Weight: 86.1834 kg

DRUGS (1)
  1. CREST PROHEALTH MOUTH WASH [Suspect]
     Indication: DENTAL DISORDER PROPHYLAXIS
     Dates: start: 20071220, end: 20080201

REACTIONS (2)
  - DYSGEUSIA [None]
  - TOOTH DISCOLOURATION [None]
